FAERS Safety Report 12224687 (Version 1)
Quarter: 2016Q1

REPORT INFORMATION
  Report Type: Spontaneous
  Country: KR (occurrence: KR)
  Receive Date: 20160331
  Receipt Date: 20160331
  Transmission Date: 20160526
  Serious: Yes (Hospitalization)
  Sender: FDA-Public Use
  Company Number: KR-AMGEN-KORCT2016039364

PATIENT
  Age: 58 Year
  Sex: Male

DRUGS (47)
  1. G-LASTA [Suspect]
     Active Substance: PEGFILGRASTIM
     Dosage: 6 MG, 1X/3WEEKS
     Route: 058
     Dates: start: 20150724
  2. CYCLOPHOSPHAMIDE. [Concomitant]
     Active Substance: CYCLOPHOSPHAMIDE
     Dosage: 1102 MG, UNK
     Route: 042
     Dates: start: 20150611, end: 20150611
  3. MAGNESIUM OXIDE. [Concomitant]
     Active Substance: MAGNESIUM OXIDE
     Dosage: 750 MG, UNK
     Route: 048
     Dates: start: 20150812
  4. CYCLOPHOSPHAMIDE. [Concomitant]
     Active Substance: CYCLOPHOSPHAMIDE
     Dosage: 1117.5 MG, UNK
     Route: 042
     Dates: start: 20150723, end: 20150723
  5. VINCRISTINE [Concomitant]
     Active Substance: VINCRISTINE
     Dosage: 2 MG, UNK
     Route: 042
     Dates: start: 20150723, end: 20150723
  6. PREDNISOLONE. [Concomitant]
     Active Substance: PREDNISOLONE
     Indication: NON-HODGKIN^S LYMPHOMA
     Dosage: 100 MG, UNK
     Route: 048
     Dates: start: 20150520, end: 20150524
  7. PREDNISOLONE. [Concomitant]
     Active Substance: PREDNISOLONE
     Dosage: 100 MG, UNK
     Route: 048
     Dates: start: 20150611, end: 20150615
  8. PREDNISOLONE. [Concomitant]
     Active Substance: PREDNISOLONE
     Dosage: 100 MG, UNK
     Route: 048
     Dates: start: 20150702, end: 20150706
  9. APREPITANT. [Concomitant]
     Active Substance: APREPITANT
     Dosage: 80 MG, UNK
     Route: 048
     Dates: start: 20150521, end: 20150725
  10. ACETAMINOPHEN. [Concomitant]
     Active Substance: ACETAMINOPHEN
     Dosage: 1300 MG, UNK
     Route: 048
     Dates: start: 20150701, end: 20150721
  11. SEPTRIN [Concomitant]
     Active Substance: SULFAMETHOXAZOLE\TRIMETHOPRIM
     Dosage: 1TAB
     Route: 048
     Dates: start: 20150521, end: 20150727
  12. ALLOPURINOL. [Concomitant]
     Active Substance: ALLOPURINOL
     Dosage: 200 MG, UNK
     Route: 048
     Dates: start: 20150521, end: 20150609
  13. DOXORUBICIN [Concomitant]
     Active Substance: DOXORUBICIN
     Indication: NON-HODGKIN^S LYMPHOMA
     Dosage: 74.5 MG, UNK
     Route: 042
     Dates: start: 20150520, end: 20150520
  14. CYCLOPHOSPHAMIDE. [Concomitant]
     Active Substance: CYCLOPHOSPHAMIDE
     Dosage: 1117.5 MG, UNK
     Route: 042
     Dates: start: 20150702, end: 20150702
  15. CYCLOPHOSPHAMIDE. [Concomitant]
     Active Substance: CYCLOPHOSPHAMIDE
     Dosage: 1128 MG, UNK
     Route: 042
     Dates: start: 20150813, end: 20150813
  16. PREGABALIN. [Concomitant]
     Active Substance: PREGABALIN
     Dosage: 15 MG, UNK
     Route: 048
     Dates: start: 20150722
  17. G-LASTA [Suspect]
     Active Substance: PEGFILGRASTIM
     Dosage: 6 MG, 1X/3WEEKS
     Route: 058
     Dates: start: 20150703
  18. RITUXIMAB [Concomitant]
     Active Substance: RITUXIMAB
     Indication: NON-HODGKIN^S LYMPHOMA
     Dosage: 558.7 MG, UNK
     Route: 042
     Dates: start: 20150520, end: 20150520
  19. RITUXIMAB [Concomitant]
     Active Substance: RITUXIMAB
     Dosage: 559 MG, UNK
     Route: 042
     Dates: start: 20150723, end: 20150723
  20. DOXORUBICIN [Concomitant]
     Active Substance: DOXORUBICIN
     Dosage: 74.5 MG, UNK
     Route: 042
     Dates: start: 20150702, end: 20150702
  21. VINCRISTINE [Concomitant]
     Active Substance: VINCRISTINE
     Dosage: 2 MG, UNK
     Route: 042
     Dates: start: 20150611, end: 20150611
  22. CHLORPHENIRAMINE                   /00072501/ [Concomitant]
     Active Substance: CHLORPHENIRAMINE
     Dosage: 4 MG, UNK
     Route: 042
     Dates: start: 20150611, end: 20150723
  23. ACETAMINOPHEN. [Concomitant]
     Active Substance: ACETAMINOPHEN
     Dosage: 650 MG, UNK
     Route: 048
     Dates: start: 20150524, end: 20150525
  24. METOCLOPRAMIDE. [Concomitant]
     Active Substance: METOCLOPRAMIDE
     Dosage: 15 MG, UNK
     Route: 048
     Dates: start: 20150525, end: 20150609
  25. MEGESTROL [Concomitant]
     Active Substance: MEGESTROL
     Dosage: 5 ML, UNK
     Route: 048
     Dates: start: 20150722
  26. SODIUM BICARBONATE. [Concomitant]
     Active Substance: SODIUM BICARBONATE
     Dosage: 120 ML, UNK
     Route: 042
     Dates: start: 20150521, end: 20150525
  27. G-LASTA [Suspect]
     Active Substance: PEGFILGRASTIM
     Indication: FEBRILE NEUTROPENIA
     Dosage: 6 MG, 1X/3WEEKS
     Route: 058
     Dates: start: 20150521
  28. G-LASTA [Suspect]
     Active Substance: PEGFILGRASTIM
     Dosage: 6 MG, 1X/3WEEKS
     Route: 058
     Dates: start: 20150814
  29. DOXORUBICIN [Concomitant]
     Active Substance: DOXORUBICIN
     Dosage: 75 MG, UNK
     Route: 042
     Dates: start: 20150813, end: 20150813
  30. CYCLOPHOSPHAMIDE. [Concomitant]
     Active Substance: CYCLOPHOSPHAMIDE
     Indication: NON-HODGKIN^S LYMPHOMA
     Dosage: 1117.5 MG, UNK
     Dates: start: 20150520, end: 20150520
  31. RANITIDINE [Concomitant]
     Active Substance: RANITIDINE\RANITIDINE HYDROCHLORIDE
     Dosage: 300 MG, UNK
     Route: 048
     Dates: start: 20150521, end: 20150609
  32. RITUXIMAB [Concomitant]
     Active Substance: RITUXIMAB
     Dosage: 551 MG, UNK
     Route: 042
     Dates: start: 20150611, end: 20150611
  33. VINCRISTINE [Concomitant]
     Active Substance: VINCRISTINE
     Dosage: 2 MG, UNK
     Route: 042
     Dates: start: 20150813, end: 20150813
  34. PREDNISOLONE. [Concomitant]
     Active Substance: PREDNISOLONE
     Dosage: 100 MG, UNK
     Route: 048
     Dates: start: 20150813, end: 20150817
  35. POTASSIUM [Concomitant]
     Active Substance: POTASSIUM
     Dosage: 3600 MG, UNK
     Route: 048
     Dates: start: 20150525, end: 20150525
  36. G-LASTA [Suspect]
     Active Substance: PEGFILGRASTIM
     Dosage: 6 MG, 1X/3WEEKS
     Route: 058
     Dates: start: 20150612
  37. RITUXIMAB [Concomitant]
     Active Substance: RITUXIMAB
     Dosage: 558.5 MG, UNK
     Route: 042
     Dates: start: 20150702, end: 20150702
  38. DOXORUBICIN [Concomitant]
     Active Substance: DOXORUBICIN
     Dosage: 74 MG, UNK
     Route: 042
     Dates: start: 20150611, end: 20150611
  39. VINCRISTINE [Concomitant]
     Active Substance: VINCRISTINE
     Indication: NON-HODGKIN^S LYMPHOMA
     Dosage: 2 MG, UNK
     Route: 042
     Dates: start: 20150520, end: 20150520
  40. VINCRISTINE [Concomitant]
     Active Substance: VINCRISTINE
     Dosage: 2 MG, UNK
     Route: 042
     Dates: start: 20150702, end: 20150702
  41. PREDNISOLONE. [Concomitant]
     Active Substance: PREDNISOLONE
     Dosage: 100 MG, UNK
     Route: 048
     Dates: start: 20150723, end: 20150727
  42. LACTULOSE. [Concomitant]
     Active Substance: LACTULOSE
     Dosage: 30 ML, UNK
     Route: 048
     Dates: start: 20150523, end: 20150609
  43. RITUXIMAB [Concomitant]
     Active Substance: RITUXIMAB
     Dosage: 564 MG, UNK
     Route: 042
     Dates: start: 20150813, end: 20150813
  44. DOXORUBICIN [Concomitant]
     Active Substance: DOXORUBICIN
     Dosage: 74.5 MG, UNK
     Route: 042
     Dates: start: 20150723, end: 20150723
  45. APREPITANT. [Concomitant]
     Active Substance: APREPITANT
     Dosage: 125 MG, UNK
     Route: 048
     Dates: start: 20150520, end: 20150724
  46. ACETAMINOPHEN. [Concomitant]
     Active Substance: ACETAMINOPHEN
     Dosage: 650 MG, UNK
     Route: 048
     Dates: start: 20150611, end: 20150723
  47. ULTRACET [Concomitant]
     Active Substance: ACETAMINOPHEN\TRAMADOL HYDROCHLORIDE
     Dosage: 1TAB
     Route: 048
     Dates: start: 20150523, end: 20150524

REACTIONS (1)
  - Haemorrhoids [Recovered/Resolved with Sequelae]

NARRATIVE: CASE EVENT DATE: 20150817
